FAERS Safety Report 11264921 (Version 1)
Quarter: 2015Q3

REPORT INFORMATION
  Report Type: Spontaneous
  Country: CA (occurrence: None)
  Receive Date: 20150709
  Receipt Date: 20150709
  Transmission Date: 20151125
  Serious: Yes (Other)
  Sender: FDA-Public Use
  Company Number: CA-2015VAL000435

PATIENT
  Age: 59 Year
  Sex: Male

DRUGS (2)
  1. METOPROLOL TARTRATE. [Suspect]
     Active Substance: METOPROLOL TARTRATE
     Indication: VENTRICULAR TACHYCARDIA
     Route: 048
  2. AMIODARONE (AMIODARONE) [Suspect]
     Active Substance: AMIODARONE
     Indication: VENTRICULAR TACHYCARDIA
     Route: 042

REACTIONS (2)
  - Ventricular tachycardia [None]
  - Ventricular fibrillation [None]
